FAERS Safety Report 6654600-9 (Version None)
Quarter: 2010Q1

REPORT INFORMATION
  Report Type: 
  Country: None (occurrence: None)
  Receive Date: 20100326
  Receipt Date: 20100318
  Transmission Date: 20100710
  Serious: Yes (Hospitalization)
  Sender: FDA-Public Use
  Company Number: DE-ABBOTT-10P-062-0629899-00

PATIENT
  Sex: Female
  Weight: 105 kg

DRUGS (12)
  1. HUMIRA [Suspect]
     Indication: RHEUMATOID ARTHRITIS
     Route: 058
  2. HUMIRA [Suspect]
     Indication: POLYARTHRITIS
  3. METHOTREXATE [Concomitant]
     Indication: POLYARTHRITIS
     Route: 058
  4. LEVOTHYROXINE SODIUM [Concomitant]
     Indication: HYPOTHYROIDISM
     Dates: start: 20050101
  5. VALSARTAN [Concomitant]
     Indication: HYPERTENSION
     Dates: start: 20050101
  6. HYDROCHLOROTHIAZIDE [Concomitant]
     Indication: HYPERTENSION
     Dosage: 25-50 MG
     Dates: start: 20050101
  7. NEBIVOLOL HCL [Concomitant]
     Indication: HYPERTENSION
     Dates: start: 20050101
  8. MOXONIDINE [Concomitant]
     Indication: HYPERTENSION
  9. EZETIMIBE [Concomitant]
     Indication: HYPERCHOLESTEROLAEMIA
     Dates: start: 20090101
  10. OMEPRAZOLE [Concomitant]
     Indication: PROPHYLAXIS AGAINST GASTROINTESTINAL ULCER
     Dates: start: 20090101
  11. FOLSAN [Concomitant]
     Indication: VITAMIN SUPPLEMENTATION
     Dosage: 1 DAY AFTER MTX APPLICATION
     Dates: start: 20081105
  12. PREDNISOLON [Concomitant]
     Indication: ARTHRITIS
     Dates: start: 20080903

REACTIONS (1)
  - CEREBROVASCULAR ACCIDENT [None]
